FAERS Safety Report 7789536-3 (Version None)
Quarter: 2011Q3

REPORT INFORMATION
  Report Type: 
  Country: None (occurrence: None)
  Receive Date: 20110930
  Receipt Date: 20110919
  Transmission Date: 20111222
  Serious: Yes (Other)
  Sender: FDA-Public Use
  Company Number: GB-JNJFOC-20110910367

PATIENT
  Sex: Female

DRUGS (1)
  1. SUDAFED NASAL SPRAY [Suspect]
     Indication: NASAL CONGESTION
     Dosage: UP TO FIVE TIMES A DAY
     Route: 065

REACTIONS (6)
  - NASAL CONGESTION [None]
  - OVERDOSE [None]
  - DEPENDENCE [None]
  - PRURITUS [None]
  - INTENTIONAL DRUG MISUSE [None]
  - NASAL ULCER [None]
